FAERS Safety Report 4673940-6 (Version None)
Quarter: 2005Q2

REPORT INFORMATION
  Report Type: 
  Country: None (occurrence: None)
  Receive Date: 20050524
  Receipt Date: 20050509
  Transmission Date: 20051028
  Serious: Yes (Hospitalization)
  Sender: FDA-Public Use
  Company Number: JP_050406439

PATIENT
  Age: 51 Year
  Sex: Male
  Weight: 64 kg

DRUGS (6)
  1. HUMALOG MIX 50/50 [Suspect]
     Indication: DIABETES MELLITUS INSULIN-DEPENDENT
     Dosage: 20 U DAY
     Dates: start: 20050414, end: 20050416
  2. PANSPORIN (CEFOTIAM HYDROCHLORIDE) [Concomitant]
  3. HALCION [Concomitant]
  4. CHLORPROMAZINE [Concomitant]
  5. NOVOLIN R [Concomitant]
  6. NOVOLIN N [Concomitant]

REACTIONS (4)
  - DRUG HYPERSENSITIVITY [None]
  - HENOCH-SCHONLEIN PURPURA [None]
  - RASH PRURITIC [None]
  - SKIN TEST POSITIVE [None]
